FAERS Safety Report 9373468 (Version 1)
Quarter: 2013Q2

REPORT INFORMATION
  Report Type: Spontaneous
  Country: AU (occurrence: AU)
  Receive Date: 20130627
  Receipt Date: 20130627
  Transmission Date: 20140414
  Serious: Yes (Other)
  Sender: FDA-Public Use
  Company Number: AU-009507513-1306AUS013243

PATIENT
  Sex: 0

DRUGS (3)
  1. RIBAVIRIN [Suspect]
  2. PEGINTERFERON ALFA-2B [Suspect]
  3. TELAPREVIR [Suspect]

REACTIONS (1)
  - Blood creatinine increased [Unknown]
